FAERS Safety Report 7300988-5 (Version None)
Quarter: 2010Q4

REPORT INFORMATION
  Report Type: 
  Country: None (occurrence: None)
  Receive Date: 20101230
  Receipt Date: 20100520
  Transmission Date: 20110411
  Serious: Yes (Other)
  Sender: FDA-Public Use
  Company Number: 20100229

PATIENT
  Age: 55 Year
  Sex: Female

DRUGS (4)
  1. VENOFER [Suspect]
     Indication: IRON DEFICIENCY ANAEMIA
     Dosage: 100 MG MONTHLY, INTRAVENOUS
     Route: 042
     Dates: start: 20091201, end: 20100512
  2. VENOFER [Suspect]
     Indication: MALABSORPTION
     Dosage: 100 MG MONTHLY, INTRAVENOUS
     Route: 042
     Dates: start: 20091201, end: 20100512
  3. CLARINEX [Concomitant]
  4. PANCREASE [Concomitant]

REACTIONS (1)
  - HYPERSENSITIVITY [None]
